FAERS Safety Report 4424991-8 (Version None)
Quarter: 2004Q3

REPORT INFORMATION
  Report Type: 
  Country: None (occurrence: None)
  Receive Date: 20040811
  Receipt Date: 20040811
  Transmission Date: 20050211
  Serious: Yes (Hospitalization)
  Sender: FDA-Public Use
  Company Number: None

PATIENT
  Age: 67 Year
  Sex: Female

DRUGS (13)
  1. ALTACE [Suspect]
     Indication: HYPERTENSION
     Dosage: 5 MG PO QD
     Route: 048
  2. ASPIRIN [Concomitant]
  3. CALCIUM [Concomitant]
  4. CARBAMAZEPINE [Concomitant]
  5. AVANDAMET [Concomitant]
  6. TERAZOSIN HCL [Concomitant]
  7. FLUPHENAZINE [Concomitant]
  8. BENZTROPINE MESYLATE [Concomitant]
  9. NIFEDIPINE [Concomitant]
  10. TRICOR [Concomitant]
  11. HYDROCHLOROTHIAZIDE [Concomitant]
  12. SYNTHROID [Concomitant]
  13. ZOCOR [Concomitant]

REACTIONS (4)
  - ANGIONEUROTIC OEDEMA [None]
  - DYSPHAGIA [None]
  - DYSPNOEA [None]
  - SWOLLEN TONGUE [None]
